FAERS Safety Report 18755342 (Version 1)
Quarter: 2021Q1

REPORT INFORMATION
  Report Type: Spontaneous
  Country: DK (occurrence: DK)
  Receive Date: 20210119
  Receipt Date: 20210119
  Transmission Date: 20210419
  Serious: Yes (Hospitalization)
  Sender: FDA-Public Use
  Company Number: DK-TEVA-2021-DK-1869142

PATIENT
  Sex: Female

DRUGS (1)
  1. BUPRENORPHINE TEVA [Suspect]
     Active Substance: BUPRENORPHINE
     Indication: RHEUMATOID ARTHRITIS
     Route: 003

REACTIONS (9)
  - Dry skin [Not Recovered/Not Resolved]
  - Macule [Unknown]
  - Renal failure [Unknown]
  - Staphylococcal infection [Unknown]
  - Swelling [Unknown]
  - Adverse drug reaction [Unknown]
  - Wound [Recovering/Resolving]
  - Skin fissures [Not Recovered/Not Resolved]
  - Pruritus [Unknown]
